FAERS Safety Report 8421713-0 (Version None)
Quarter: 2012Q2

REPORT INFORMATION
  Report Type: 
  Country: None (occurrence: None)
  Receive Date: 20120608
  Receipt Date: 20120530
  Transmission Date: 20120825
  Serious: Yes (Other)
  Sender: FDA-Public Use
  Company Number: DE-ASTRAZENECA-2012SE29658

PATIENT
  Age: 21 Year
  Sex: Male
  Weight: 86 kg

DRUGS (4)
  1. SEROQUEL [Suspect]
     Route: 048
  2. SEROQUEL [Suspect]
     Indication: SCHIZOAFFECTIVE DISORDER
     Route: 048
     Dates: start: 20050101
  3. VENLAFAXINE [Concomitant]
     Indication: DEPRESSION
     Route: 047
  4. SEROQUEL [Suspect]
     Route: 048
     Dates: start: 20060101

REACTIONS (3)
  - RESTLESS LEGS SYNDROME [None]
  - SLEEP DISORDER DUE TO GENERAL MEDICAL CONDITION, INSOMNIA TYPE [None]
  - CONDITION AGGRAVATED [None]
